FAERS Safety Report 22017277 (Version 2)
Quarter: 2023Q1

REPORT INFORMATION
  Report Type: Spontaneous
  Country: JP (occurrence: JP)
  Receive Date: 20230221
  Receipt Date: 20230302
  Transmission Date: 20230418
  Serious: Yes (Death, Other)
  Sender: FDA-Public Use
  Company Number: JP-DSJP-DSJ-2023-106340

PATIENT
  Age: 81 Year
  Sex: Male
  Weight: 56 kg

DRUGS (4)
  1. EDOXABAN TOSYLATE [Suspect]
     Active Substance: EDOXABAN TOSYLATE
     Indication: Atrial fibrillation
     Dosage: 30 MG, QD
     Route: 048
     Dates: start: 20210831, end: 20230121
  2. EDOXABAN TOSYLATE [Suspect]
     Active Substance: EDOXABAN TOSYLATE
     Indication: Thrombosis prophylaxis
  3. TARLIGE TABLET [Concomitant]
     Indication: Spinal compression fracture
     Dosage: 5 MG, BID
     Route: 048
     Dates: start: 20230108, end: 20230122
  4. AMLODIPINE BESYLATE\AZILSARTAN [Concomitant]
     Active Substance: AMLODIPINE BESYLATE\AZILSARTAN
     Indication: Hypertension
     Dosage: UNK UNK, QD
     Route: 048
     Dates: start: 20220706, end: 20230122

REACTIONS (6)
  - Sudden death [Fatal]
  - Anaemia [Unknown]
  - Gastric ulcer [Unknown]
  - Hyperuricaemia [Unknown]
  - Insomnia [Unknown]
  - Hyperlipidaemia [Unknown]

NARRATIVE: CASE EVENT DATE: 20230120
